FAERS Safety Report 10046276 (Version 1)
Quarter: 2014Q1

REPORT INFORMATION
  Report Type: Spontaneous
  Country: US (occurrence: US)
  Receive Date: 20140331
  Receipt Date: 20140331
  Transmission Date: 20141002
  Serious: No
  Sender: FDA-Public Use
  Company Number: US-BIOGENIDEC-2014BI026741

PATIENT
  Age: 48 Year
  Sex: Female

DRUGS (9)
  1. TECFIDERA [Suspect]
     Indication: MULTIPLE SCLEROSIS
     Route: 048
     Dates: start: 20140214
  2. FLOVENT HFA [Concomitant]
  3. GABAPENTIN [Concomitant]
  4. HYDROCODONE-ACETAMINOPHEN [Concomitant]
  5. IBUPROFEN [Concomitant]
  6. PROVENTIL [Concomitant]
  7. TRAZODONE HCL [Concomitant]
  8. VALIUM [Concomitant]
  9. VITAMIN D3 [Concomitant]

REACTIONS (3)
  - Dry mouth [Not Recovered/Not Resolved]
  - Diarrhoea [Recovered/Resolved]
  - Dyspepsia [Recovered/Resolved]
